FAERS Safety Report 9549598 (Version 2)
Quarter: 2013Q4

REPORT INFORMATION
  Report Type: Spontaneous
  Country: JP (occurrence: JP)
  Receive Date: 20130924
  Receipt Date: 20131002
  Transmission Date: 20140711
  Serious: Yes (Death)
  Sender: FDA-Public Use
  Company Number: JP-BAXTER-2013BAX036586

PATIENT
  Sex: Male

DRUGS (1)
  1. DIANEAL-N PD-4 2.5 PD SOLUTION [Suspect]
     Indication: DIABETIC NEPHROPATHY
     Route: 033
     Dates: start: 20130329, end: 20130913

REACTIONS (1)
  - Cardiac disorder [Fatal]
